FAERS Safety Report 8507458-7 (Version None)
Quarter: 2012Q3

REPORT INFORMATION
  Report Type: 
  Country: None (occurrence: None)
  Receive Date: 20120712
  Receipt Date: 20120703
  Transmission Date: 20120928
  Serious: Yes (Hospitalization)
  Sender: FDA-Public Use
  Company Number: US-BAYER-2012-020843

PATIENT
  Age: 19 Year
  Sex: Female
  Weight: 113.38 kg

DRUGS (5)
  1. YASMIN [Suspect]
     Indication: CONTRACEPTION
     Dosage: UNK
     Dates: start: 20061001, end: 20061101
  2. GEODON [Concomitant]
     Dosage: 60 MG, A DAY
  3. PENICILLIN [Concomitant]
  4. AMBIEN CR [Concomitant]
     Dosage: 12.5 MG, A DAY
  5. VAGINAL CREAM [Concomitant]

REACTIONS (6)
  - PULMONARY EMBOLISM [None]
  - MENTAL DISORDER [None]
  - EMOTIONAL DISTRESS [None]
  - ANXIETY [None]
  - PAIN [None]
  - GENERAL PHYSICAL HEALTH DETERIORATION [None]
